FAERS Safety Report 21260352 (Version 1)
Quarter: 2022Q3

REPORT INFORMATION
  Report Type: Spontaneous
  Country: US (occurrence: US)
  Receive Date: 20220826
  Receipt Date: 20220826
  Transmission Date: 20221026
  Serious: No
  Sender: FDA-Public Use
  Company Number: US-MYLANLABS-2022M1078365

PATIENT

DRUGS (1)
  1. METOPROLOL TARTRATE [Suspect]
     Active Substance: METOPROLOL TARTRATE
     Indication: Cardiac disorder
     Dosage: UNK
     Route: 065
     Dates: start: 2019

REACTIONS (7)
  - Malaise [Unknown]
  - Illness [Unknown]
  - Cough [Unknown]
  - Dry skin [Unknown]
  - Diarrhoea [Unknown]
  - Palpitations [Unknown]
  - Arthralgia [Unknown]
